FAERS Safety Report 10067224 (Version 1)
Quarter: 2014Q2

REPORT INFORMATION
  Report Type: Spontaneous
  Country: US (occurrence: None)
  Receive Date: 20140408
  Receipt Date: 20140408
  Transmission Date: 20141212
  Serious: Yes (Other)
  Sender: FDA-Public Use
  Company Number: None

PATIENT
  Age: 62 Year
  Sex: Female
  Weight: 111.13 kg

DRUGS (1)
  1. LIDOCAINE [Suspect]
     Indication: DENTAL DISORDER PROPHYLAXIS

REACTIONS (5)
  - Somnolence [None]
  - Dizziness [None]
  - Lethargy [None]
  - Alopecia [None]
  - Alopecia [None]
